FAERS Safety Report 14789569 (Version 1)
Quarter: 2018Q2

REPORT INFORMATION
  Report Type: Spontaneous
  Country: US (occurrence: US)
  Receive Date: 20180423
  Receipt Date: 20180423
  Transmission Date: 20180711
  Serious: No
  Sender: FDA-Public Use
  Company Number: US-TEVA-2018-US-870114

PATIENT
  Sex: Female

DRUGS (2)
  1. QNASL [Suspect]
     Active Substance: BECLOMETHASONE DIPROPIONATE
     Indication: ASPIRIN-EXACERBATED RESPIRATORY DISEASE
     Dosage: 80 MICROGRAM DAILY; NASAL AEROSOL, ONE SPRAY IN EACH NOSTRIL ONCE DAILY
     Route: 045
     Dates: start: 2016
  2. QVAR [Suspect]
     Active Substance: BECLOMETHASONE DIPROPIONATE
     Indication: ASTHMA
     Dosage: TWO PUFFS IN EACH NOSTRIL ONCE DAILY
     Route: 045
     Dates: start: 201712

REACTIONS (6)
  - Dysgeusia [Recovered/Resolved]
  - Wrong technique in device usage process [Unknown]
  - Nasal congestion [Unknown]
  - Drug ineffective [Unknown]
  - Anosmia [Recovered/Resolved]
  - Nasal discomfort [Unknown]

NARRATIVE: CASE EVENT DATE: 2016
